FAERS Safety Report 5169011-5 (Version None)
Quarter: 2006Q4

REPORT INFORMATION
  Report Type: 
  Country: None (occurrence: None)
  Receive Date: 20061201
  Receipt Date: 20061122
  Transmission Date: 20070319
  Serious: Yes (Hospitalization, Other)
  Sender: FDA-Public Use
  Company Number: 2006SP004259

PATIENT
  Age: 47 Year
  Sex: Female
  Weight: 68.7 kg

DRUGS (7)
  1. TEMODAR [Suspect]
     Indication: GLIOBLASTOMA MULTIFORME
     Dosage: 75 MG/M2; QD; PO
     Route: 048
     Dates: start: 20060829, end: 20060925
  2. RADIATION THERAPY [Suspect]
     Indication: GLIOBLASTOMA MULTIFORME
     Dosage: QD
     Dates: start: 20060829, end: 20061003
  3. BACTRIM DS [Suspect]
     Indication: DRUG USE FOR UNKNOWN INDICATION
     Dosage: 1 DF; TIW; PO
     Route: 048
     Dates: end: 20061020
  4. DEXAMETHASONE [Suspect]
     Indication: DRUG USE FOR UNKNOWN INDICATION
     Dates: end: 20061001
  5. KEPPRA [Concomitant]
  6. PREMPRO [Concomitant]
  7. ZOFRAN [Concomitant]

REACTIONS (8)
  - APLASTIC ANAEMIA [None]
  - CELLULITIS [None]
  - FEBRILE NEUTROPENIA [None]
  - GLIOBLASTOMA MULTIFORME [None]
  - HAEMORRHOIDS [None]
  - MALIGNANT NEOPLASM PROGRESSION [None]
  - PROCTALGIA [None]
  - THROMBOCYTOPENIA [None]
